FAERS Safety Report 5647507-7 (Version None)
Quarter: 2008Q1

REPORT INFORMATION
  Report Type: 
  Country: None (occurrence: None)
  Receive Date: 20080303
  Receipt Date: 20080219
  Transmission Date: 20080703
  Serious: Yes (Other)
  Sender: FDA-Public Use
  Company Number: JP-ELI_LILLY_AND_COMPANY-JP200802000333

PATIENT
  Sex: Female
  Weight: 54 kg

DRUGS (2)
  1. EVISTA [Suspect]
     Indication: OSTEOPOROSIS POSTMENOPAUSAL
     Dosage: 60 MG, DAILY (1/D)
     Route: 048
     Dates: start: 20070827, end: 20070828
  2. ALFAROL [Concomitant]
     Indication: OSTEOPOROSIS POSTMENOPAUSAL
     Dosage: 0.5 UG, 2/D
     Route: 048
     Dates: start: 20070507

REACTIONS (5)
  - CONVULSION [None]
  - DIARRHOEA [None]
  - HOT FLUSH [None]
  - OEDEMA PERIPHERAL [None]
  - VISION BLURRED [None]
